FAERS Safety Report 7999947 (Version 4)
Quarter: 2014Q1

REPORT INFORMATION
  Report Type: Report from Study
  Country: DE (occurrence: DE)
  Receive Date: 20110621
  Receipt Date: 20140214
  Transmission Date: 20141002
  Serious: Yes (Other)
  Sender: FDA-Public Use
  Company Number: DE-JNJFOC-20110603091

PATIENT
  Age: 54 Year
  Sex: Male
  Weight: 83 kg

DRUGS (2)
  1. STELARA [Suspect]
     Indication: PSORIASIS
     Route: 058
     Dates: start: 20110428, end: 20110428
  2. STELARA [Suspect]
     Indication: PSORIASIS
     Route: 058
     Dates: end: 201206

REACTIONS (2)
  - Upper respiratory tract infection [Recovered/Resolved]
  - General physical health deterioration [Recovered/Resolved]
